FAERS Safety Report 9266572 (Version 2)
Quarter: 2013Q2

REPORT INFORMATION
  Report Type: Spontaneous
  Country: SA (occurrence: SA)
  Receive Date: 20130502
  Receipt Date: 20130531
  Transmission Date: 20140414
  Serious: Yes (Other)
  Sender: FDA-Public Use
  Company Number: PHHY2013SA041937

PATIENT
  Age: 50 Year
  Sex: Male

DRUGS (3)
  1. GLIVEC [Suspect]
     Indication: GASTROINTESTINAL STROMAL TUMOUR
     Dosage: 400 MG, PER MONTH
     Route: 048
  2. GLIVEC [Suspect]
     Dosage: 800 MG, UNK
     Route: 048
  3. GLIVEC [Suspect]
     Dosage: 400 MG, UNK
     Route: 048

REACTIONS (2)
  - Anaemia megaloblastic [Not Recovered/Not Resolved]
  - Bone marrow disorder [Not Recovered/Not Resolved]
